FAERS Safety Report 7256582-8 (Version None)
Quarter: 2011Q1

REPORT INFORMATION
  Report Type: 
  Country: None (occurrence: None)
  Receive Date: 20110129
  Receipt Date: 20100721
  Transmission Date: 20110831
  Serious: No
  Sender: FDA-Public Use
  Company Number: US-ABBOTT-10P-163-0659174-00

PATIENT
  Age: 60 Year
  Sex: Female

DRUGS (29)
  1. LEXAPRO [Concomitant]
     Indication: SEDATIVE THERAPY
  2. PLAVIX [Concomitant]
     Indication: ANTICOAGULANT THERAPY
  3. PREDNISONE [Concomitant]
     Indication: RHEUMATOID ARTHRITIS
  4. AMBIEN [Concomitant]
     Indication: SLEEP DISORDER THERAPY
     Dosage: NIGHTLY
  5. PRAVASTATIN [Concomitant]
     Indication: BLOOD CHOLESTEROL
  6. NEXIUM [Concomitant]
     Indication: GASTROOESOPHAGEAL REFLUX DISEASE
  7. SULFASALAZINE [Concomitant]
     Indication: RHEUMATOID ARTHRITIS
     Dosage: 2 IN THE AM + 2 IN THE PM
  8. ASA [Concomitant]
     Indication: ANTICOAGULANT THERAPY
  9. LORTAB [Concomitant]
     Indication: PAIN
     Dosage: 10/500 X 4 TABS
  10. IRON [Concomitant]
     Indication: PRODUCT USED FOR UNKNOWN INDICATION
  11. VITAMIN B-12 [Concomitant]
     Indication: PRODUCT USED FOR UNKNOWN INDICATION
  12. CHANTIX [Concomitant]
     Indication: EX-TOBACCO USER
  13. ZOMETA [Concomitant]
     Indication: OSTEOPOROSIS
  14. OXYGEN [Concomitant]
     Indication: PRODUCT USED FOR UNKNOWN INDICATION
     Dosage: PER NASAL CANNULA, 18 HRS DAILY
  15. FOLIC ACID [Concomitant]
     Indication: PRODUCT USED FOR UNKNOWN INDICATION
  16. MTX [Concomitant]
     Indication: RHEUMATOID ARTHRITIS
  17. HYDROXYUREA [Concomitant]
     Indication: THROMBOCYTOSIS
     Dosage: DAILY ON MONDAY + WEDNESDAY, 500MG X 2 ON FRIDAY
  18. VALIUM [Concomitant]
     Indication: TREMOR
     Dosage: UP TO 3 A DAY
  19. CALCIUM [Concomitant]
     Indication: PRODUCT USED FOR UNKNOWN INDICATION
  20. HUMIRA [Suspect]
     Indication: RHEUMATOID ARTHRITIS
     Dates: start: 20100609
  21. ADVAIR [Concomitant]
     Indication: CHRONIC OBSTRUCTIVE PULMONARY DISEASE
     Dosage: 500/50, 1 IN THE AM + 1 IN THE PM
  22. ALBUTEROL [Concomitant]
     Indication: PRODUCT USED FOR UNKNOWN INDICATION
     Route: 055
  23. HUMIRA [Suspect]
     Indication: RHEUMATOID ARTHRITIS
     Dates: start: 20100721
  24. SPIRIVA [Concomitant]
     Indication: CHRONIC OBSTRUCTIVE PULMONARY DISEASE
     Dosage: 1 PUFF DAILY
  25. ARIMIDEX [Concomitant]
     Indication: ANTIOESTROGEN THERAPY
  26. VITAMIN B6 [Concomitant]
     Indication: PRODUCT USED FOR UNKNOWN INDICATION
  27. MULTI-VITAMIN [Concomitant]
     Indication: PRODUCT USED FOR UNKNOWN INDICATION
  28. COREG [Concomitant]
     Indication: HYPERTENSION
  29. VITAMIN D [Concomitant]
     Indication: PRODUCT USED FOR UNKNOWN INDICATION

REACTIONS (2)
  - INJECTION SITE HAEMATOMA [None]
  - INJECTION SITE PAIN [None]
